FAERS Safety Report 6842075-6 (Version None)
Quarter: 2010Q3

REPORT INFORMATION
  Report Type: 
  Country: None (occurrence: None)
  Receive Date: 20100709
  Receipt Date: 20100629
  Transmission Date: 20110219
  Serious: Yes (Death, Hospitalization)
  Sender: FDA-Public Use
  Company Number: 2010MA000441

PATIENT
  Age: 71 Year
  Sex: Male

DRUGS (10)
  1. AMLODIPINE BESYLATE [Suspect]
     Indication: PRODUCT USED FOR UNKNOWN INDICATION
     Dosage: 5 MG;QD;PO
     Route: 048
     Dates: start: 20100318
  2. SIMVASTATIN [Suspect]
     Indication: PRODUCT USED FOR UNKNOWN INDICATION
     Dates: start: 20100301
  3. FURADANTIN (NO PREF. NAME) [Suspect]
     Indication: URINARY TRACT INFECTION
     Dates: start: 20100401
  4. CARBAMAZEPINE [Suspect]
     Indication: PRODUCT USED FOR UNKNOWN INDICATION
     Dates: start: 20100301
  5. ENALAPRIL MALEATE [Concomitant]
  6. FOLACIN [Concomitant]
  7. LEVOTHYROXINE SODIUM [Concomitant]
  8. BEHEPAN [Concomitant]
  9. FLUTIDE NASAL [Concomitant]
  10. PLAVIX [Concomitant]

REACTIONS (19)
  - ANURIA [None]
  - BLOOD BILIRUBIN INCREASED [None]
  - CARDIAC FAILURE [None]
  - COAGULOPATHY [None]
  - DEPRESSED LEVEL OF CONSCIOUSNESS [None]
  - DRUG RASH WITH EOSINOPHILIA AND SYSTEMIC SYMPTOMS [None]
  - GALLBLADDER DISORDER [None]
  - HEPATIC FAILURE [None]
  - LABORATORY TEST INTERFERENCE [None]
  - LEUKOCYTOSIS [None]
  - LIVER DISORDER [None]
  - MULTI-ORGAN FAILURE [None]
  - PLEURAL FIBROSIS [None]
  - PULMONARY OEDEMA [None]
  - PYREXIA [None]
  - RENAL DISORDER [None]
  - SEPSIS [None]
  - TRANSAMINASES INCREASED [None]
  - URINARY TRACT INFECTION [None]
